FAERS Safety Report 7109700-6 (Version None)
Quarter: 2010Q4

REPORT INFORMATION
  Report Type: 
  Country: None (occurrence: None)
  Receive Date: 20101116
  Receipt Date: 20101116
  Transmission Date: 20110411
  Serious: Yes (Hospitalization, Other)
  Sender: FDA-Public Use
  Company Number: None

PATIENT
  Age: 51 Year
  Sex: Female

DRUGS (2)
  1. LISINOPRIL AND HYDROCHLOROTHIAZIDE [Suspect]
     Dosage: 25MG DAILY/10MG DAILY
  2. . [Concomitant]
     Dosage: ..

REACTIONS (3)
  - DIZZINESS [None]
  - HYPOTENSION [None]
  - POLYURIA [None]
